FAERS Safety Report 13948766 (Version 2)
Quarter: 2017Q3

REPORT INFORMATION
  Report Type: Spontaneous
  Country: US (occurrence: US)
  Receive Date: 20170908
  Receipt Date: 20170918
  Transmission Date: 20171128
  Serious: Yes (Hospitalization, Other)
  Sender: FDA-Public Use
  Company Number: US-JNJFOC-20170901030

PATIENT
  Sex: Female

DRUGS (6)
  1. INVEGA SUSTENNA [Suspect]
     Active Substance: PALIPERIDONE PALMITATE
     Indication: BIPOLAR DISORDER
     Route: 030
     Dates: start: 2016
  2. INVEGA SUSTENNA [Suspect]
     Active Substance: PALIPERIDONE PALMITATE
     Indication: SCHIZOPHRENIA
     Route: 030
     Dates: start: 2010, end: 2012
  3. INVEGA SUSTENNA [Suspect]
     Active Substance: PALIPERIDONE PALMITATE
     Indication: BIPOLAR DISORDER
     Route: 030
  4. INVEGA SUSTENNA [Suspect]
     Active Substance: PALIPERIDONE PALMITATE
     Indication: BIPOLAR DISORDER
     Route: 030
     Dates: start: 2010, end: 2012
  5. INVEGA SUSTENNA [Suspect]
     Active Substance: PALIPERIDONE PALMITATE
     Indication: SCHIZOPHRENIA
     Route: 030
  6. INVEGA SUSTENNA [Suspect]
     Active Substance: PALIPERIDONE PALMITATE
     Indication: SCHIZOPHRENIA
     Route: 030
     Dates: start: 2016

REACTIONS (17)
  - Vertigo [Unknown]
  - Inappropriate schedule of drug administration [Unknown]
  - Hospitalisation [Not Recovered/Not Resolved]
  - Hostility [Not Recovered/Not Resolved]
  - Eye movement disorder [Unknown]
  - Off label use [Unknown]
  - Meningitis [Recovered/Resolved]
  - Ear disorder [Unknown]
  - Genital disorder female [Recovered/Resolved]
  - Breast atrophy [Unknown]
  - Fall [Unknown]
  - Gastric disorder [Unknown]
  - Ageusia [Unknown]
  - Vulvovaginal dryness [Recovered/Resolved]
  - Cardiac disorder [Unknown]
  - Incorrect dose administered [Unknown]
  - Cardiac arrest [Recovered/Resolved]

NARRATIVE: CASE EVENT DATE: 2010
